FAERS Safety Report 13116253 (Version 5)
Quarter: 2017Q3

REPORT INFORMATION
  Report Type: Report from Study
  Country: NL (occurrence: NL)
  Receive Date: 20170116
  Receipt Date: 20170922
  Transmission Date: 20171127
  Serious: Yes (Death, Hospitalization, Other)
  Sender: FDA-Public Use
  Company Number: NL-INCYTE CORPORATION-2016IN007627

PATIENT

DRUGS (4)
  1. OSELTAMIVIR [Concomitant]
     Active Substance: OSELTAMIVIR
     Indication: INFLUENZA
     Dosage: 6 MG, QD
     Route: 048
     Dates: start: 20151212, end: 20151214
  2. JAKAVI [Suspect]
     Active Substance: RUXOLITINIB
     Indication: PRIMARY MYELOFIBROSIS
     Dosage: 20 MG, BID
     Route: 048
     Dates: start: 20120830, end: 20161210
  3. CEFTRIAXON [Concomitant]
     Active Substance: CEFTRIAXONE
     Indication: PRODUCT USED FOR UNKNOWN INDICATION
     Dosage: 2000 MG, UNK
     Route: 042
     Dates: start: 20151212, end: 20151218
  4. AMOXICILLIN. [Concomitant]
     Active Substance: AMOXICILLIN
     Indication: PRODUCT USED FOR UNKNOWN INDICATION
     Dosage: 625 MG, TID
     Route: 048
     Dates: start: 20151218, end: 20151227

REACTIONS (8)
  - Somnolence [Recovering/Resolving]
  - Multiple organ dysfunction syndrome [Fatal]
  - Staphylococcal sepsis [Unknown]
  - Pneumonia pneumococcal [Fatal]
  - Pneumonia [Fatal]
  - Rhinovirus infection [Unknown]
  - BK virus infection [Unknown]
  - Staphylococcal infection [Fatal]

NARRATIVE: CASE EVENT DATE: 20161119
